FAERS Safety Report 11432330 (Version 1)
Quarter: 2015Q3

REPORT INFORMATION
  Report Type: Spontaneous
  Country: GB (occurrence: GB)
  Receive Date: 20150828
  Receipt Date: 20150828
  Transmission Date: 20151125
  Serious: Yes (Other)
  Sender: FDA-Public Use
  Company Number: GB-TEVA-587911ACC

PATIENT
  Age: 72 Year
  Sex: Female
  Weight: 99.78 kg

DRUGS (7)
  1. PARACETAMOL [Concomitant]
     Active Substance: ACETAMINOPHEN
  2. ATENOLOL. [Concomitant]
     Active Substance: ATENOLOL
  3. IBUPROFEN. [Concomitant]
     Active Substance: IBUPROFEN
  4. SIMVASTATIN. [Suspect]
     Active Substance: SIMVASTATIN
     Indication: BLOOD CHOLESTEROL INCREASED
     Dosage: 20 MILLIGRAM DAILY;
     Route: 048
     Dates: start: 20131101, end: 20150701
  5. AMLODIPINE [Concomitant]
     Active Substance: AMLODIPINE BESYLATE
  6. GLUCOSAMINE [Concomitant]
     Active Substance: GLUCOSAMINE
  7. ST JOHNS WORT [Concomitant]
     Active Substance: ST. JOHN^S WORT

REACTIONS (6)
  - Limb discomfort [Recovered/Resolved with Sequelae]
  - Hypoaesthesia [Recovered/Resolved with Sequelae]
  - Paraesthesia [Recovered/Resolved with Sequelae]
  - Gait disturbance [Not Recovered/Not Resolved]
  - Myalgia [Recovered/Resolved with Sequelae]
  - Fatigue [Recovered/Resolved with Sequelae]

NARRATIVE: CASE EVENT DATE: 20131101
